FAERS Safety Report 4930723-7 (Version None)
Quarter: 2006Q1

REPORT INFORMATION
  Report Type: 
  Country: None (occurrence: None)
  Receive Date: 20060227
  Receipt Date: 20060216
  Transmission Date: 20060701
  Serious: Yes (Other)
  Sender: FDA-Public Use
  Company Number: 2006024054

PATIENT
  Age: 47 Year
  Sex: Female
  Weight: 68.4932 kg

DRUGS (3)
  1. LYRICA [Suspect]
     Indication: PAIN IN EXTREMITY
     Dosage: 50 MG (50 MG 1 IN 1 D) ORAL
     Route: 048
     Dates: start: 20051130, end: 20060112
  2. CORTISONE ACETATE [Suspect]
     Dates: start: 20051130, end: 20051201
  3. MOTRIN [Concomitant]

REACTIONS (13)
  - AMNESIA [None]
  - CONDUCTION DISORDER [None]
  - CONSTIPATION [None]
  - DRUG INEFFECTIVE [None]
  - FATIGUE [None]
  - HEART RATE DECREASED [None]
  - HEART RATE IRREGULAR [None]
  - PAIN IN EXTREMITY [None]
  - SLEEP DISORDER [None]
  - TREATMENT NONCOMPLIANCE [None]
  - VENTRICULAR EXTRASYSTOLES [None]
  - VISION BLURRED [None]
  - WEIGHT INCREASED [None]
